FAERS Safety Report 5189827-9 (Version None)
Quarter: 2006Q4

REPORT INFORMATION
  Report Type: 
  Country: None (occurrence: None)
  Receive Date: 20061215
  Receipt Date: 20061204
  Transmission Date: 20070319
  Serious: Yes (Life-Threatening, Hospitalization)
  Sender: FDA-Public Use
  Company Number: 2006150657

PATIENT
  Age: 40 Year
  Sex: Female

DRUGS (6)
  1. CELEBREX [Suspect]
     Dosage: 200 MG, AS NECESSARY, ORAL
     Route: 048
     Dates: start: 20051118, end: 20060115
  2. IBUPROFEN [Suspect]
     Dosage: AS NECESSARY, ORAL
     Route: 048
     Dates: end: 20060115
  3. ACETAMINOPHEN AND TRAMADOL HCL [Suspect]
     Dosage: 1 DOSAGE FORM AS NECESSARY, ORAL
     Route: 048
     Dates: start: 20051118, end: 20060115
  4. CELIPROLOL (CELIPROLOL) [Concomitant]
  5. BROMAZEPAM (BROMAZEPAM) [Concomitant]
  6. DIOSMINE (DIOSMIN) [Concomitant]

REACTIONS (6)
  - BONE MARROW FAILURE [None]
  - BONE MARROW TRANSPLANT [None]
  - CONTUSION [None]
  - PANCYTOPENIA [None]
  - PETECHIAE [None]
  - SELF-MEDICATION [None]
